FAERS Safety Report 14975367 (Version 1)
Quarter: 2018Q2

REPORT INFORMATION
  Report Type: Report from Study
  Country: CA (occurrence: CA)
  Receive Date: 20180605
  Receipt Date: 20180605
  Transmission Date: 20180711
  Serious: Yes (Hospitalization)
  Sender: FDA-Public Use
  Company Number: CA-APOPHARMA-2018AP009858

PATIENT
  Sex: Male
  Weight: 71 kg

DRUGS (2)
  1. FERRIPROX [Suspect]
     Active Substance: DEFERIPRONE
     Indication: SUPERFICIAL SIDEROSIS OF CENTRAL NERVOUS SYSTEM
     Dosage: 28.2 MG/KG, QD
     Route: 048
     Dates: start: 20180226
  2. FERRIPROX [Suspect]
     Active Substance: DEFERIPRONE
     Dosage: 28.2 MG/KG, QD
     Route: 048
     Dates: start: 20180330

REACTIONS (4)
  - Rash generalised [Recovering/Resolving]
  - Delusion [Recovering/Resolving]
  - Agitation [Recovering/Resolving]
  - Hospitalisation [Recovering/Resolving]
